FAERS Safety Report 15573006 (Version 1)
Quarter: 2018Q4

REPORT INFORMATION
  Report Type: Spontaneous
  Country: US (occurrence: US)
  Receive Date: 20181031
  Receipt Date: 20181031
  Transmission Date: 20190205
  Serious: No
  Sender: FDA-Public Use
  Company Number: US-SA-2018SA297747

PATIENT
  Age: 33 Year
  Sex: Female

DRUGS (16)
  1. DESONIDE. [Concomitant]
     Active Substance: DESONIDE
  2. TRIAMCINOLON [TRIAMCINOLONE] [Concomitant]
  3. DUPIXENT [Suspect]
     Active Substance: DUPILUMAB
     Indication: PSORIASIS
  4. CLINDAMYCIN. [Concomitant]
     Active Substance: CLINDAMYCIN
  5. TRAZODONE [Concomitant]
     Active Substance: TRAZODONE HYDROCHLORIDE
  6. VALTREX [Concomitant]
     Active Substance: VALACYCLOVIR HYDROCHLORIDE
  7. DUPIXENT [Suspect]
     Active Substance: DUPILUMAB
     Indication: DERMATITIS ATOPIC
     Dosage: 300 MG, QOW
     Route: 058
     Dates: start: 201808
  8. METFORMIN [Concomitant]
     Active Substance: METFORMIN HYDROCHLORIDE
  9. NEXIUM [ESOMEPRAZOLE SODIUM] [Concomitant]
  10. PREVACID [Concomitant]
     Active Substance: LANSOPRAZOLE
  11. CETIRIZINE [Concomitant]
     Active Substance: CETIRIZINE HYDROCHLORIDE
  12. CLOBETASOL [Concomitant]
     Active Substance: CLOBETASOL
  13. TOPICORT [DESOXIMETASONE] [Concomitant]
  14. NECON [MESTRANOL;NORETHISTERONE] [Concomitant]
  15. SPIRONOLACTON [Concomitant]
     Active Substance: SPIRONOLACTONE
  16. ZANTAC [Concomitant]
     Active Substance: RANITIDINE HYDROCHLORIDE

REACTIONS (1)
  - Dermatitis [Recovering/Resolving]

NARRATIVE: CASE EVENT DATE: 201810
